FAERS Safety Report 8762676 (Version 1)
Quarter: 2012Q4

REPORT INFORMATION
  Report Type: 
  Country: US (occurrence: US)
  Receive Date: 20120831
  Receipt Date: 20120831
  Transmission Date: 20130627
  Serious: No
  Sender: FDA-Public Use
  Company Number: US-TEVA-355887USA

PATIENT
  Age: 59 Year
  Sex: Male

DRUGS (3)
  1. NUVIGIL [Suspect]
     Indication: SLEEP DISORDER
     Dosage: 150 Milligram Daily;
     Dates: start: 20120826
  2. IBUPROFEN [Concomitant]
     Dosage: 66.6667 Milligram Daily; 1800 mg
  3. JAYLN [Concomitant]
     Indication: PROSTATOMEGALY

REACTIONS (3)
  - Pollakiuria [Recovered/Resolved]
  - Malaise [Unknown]
  - Drug ineffective [Unknown]
